FAERS Safety Report 15481077 (Version 1)
Quarter: 2018Q4

REPORT INFORMATION
  Report Type: Spontaneous
  Country: US (occurrence: US)
  Receive Date: 20181010
  Receipt Date: 20181010
  Transmission Date: 20190205
  Serious: No
  Sender: FDA-Public Use
  Company Number: US-SA-2017SA196796

PATIENT
  Age: 60 Year
  Sex: Female

DRUGS (1)
  1. AUBAGIO [Suspect]
     Active Substance: TERIFLUNOMIDE
     Indication: MULTIPLE SCLEROSIS
     Dosage: 7 MG,QD
     Route: 048
     Dates: start: 20170103

REACTIONS (8)
  - Ankle fracture [Unknown]
  - Foot fracture [Unknown]
  - Gait disturbance [Unknown]
  - Thinking abnormal [Unknown]
  - Sensory disturbance [Unknown]
  - Loss of personal independence in daily activities [Unknown]
  - Memory impairment [Unknown]
  - Asthenia [Unknown]

NARRATIVE: CASE EVENT DATE: 20171003
